FAERS Safety Report 8942224 (Version 1)
Quarter: 2012Q4

REPORT INFORMATION
  Report Type: Spontaneous
  Country: US (occurrence: None)
  Receive Date: 20121129
  Receipt Date: 20121129
  Transmission Date: 20130627
  Serious: Yes (Life-Threatening, Hospitalization, Disabling)
  Sender: FDA-Public Use
  Company Number: None

PATIENT
  Age: 82 Year
  Sex: Female
  Weight: 61.24 kg

DRUGS (1)
  1. PRADAXA 75 MG BOEHRINGER INGELHEIM [Suspect]
     Indication: THROMBOSIS LEG
     Dosage: 1 capsule every 12 hours po
     Route: 048
     Dates: start: 20121024, end: 20121110

REACTIONS (2)
  - Cerebral haemorrhage [None]
  - Myocardial infarction [None]
